FAERS Safety Report 13274625 (Version 1)
Quarter: 2017Q1

REPORT INFORMATION
  Report Type: Spontaneous
  Country: GB (occurrence: GB)
  Receive Date: 20170227
  Receipt Date: 20170227
  Transmission Date: 20170428
  Serious: Yes (Disabling, Other)
  Sender: FDA-Public Use
  Company Number: GB-TEVA-742984ACC

PATIENT
  Age: 70 Year
  Sex: Male
  Weight: 83.91 kg

DRUGS (4)
  1. LOSARTAN. [Suspect]
     Active Substance: LOSARTAN
     Indication: ESSENTIAL HYPERTENSION
     Dosage: 25 MILLIGRAM DAILY;
     Route: 048
     Dates: start: 201507, end: 201610
  2. COCODAMOL [Concomitant]
     Active Substance: ACETAMINOPHEN\CODEINE PHOSPHATE
  3. BISOPROLOL FUMARATE. [Concomitant]
     Active Substance: BISOPROLOL FUMARATE
     Indication: ARRHYTHMIA
  4. AMLODIPINE [Suspect]
     Active Substance: AMLODIPINE BESYLATE
     Indication: ESSENTIAL HYPERTENSION
     Route: 048
     Dates: start: 201412, end: 201507

REACTIONS (5)
  - Visual impairment [Not Recovered/Not Resolved]
  - Myalgia [Not Recovered/Not Resolved]
  - Vision blurred [Not Recovered/Not Resolved]
  - Vitamin D deficiency [Unknown]
  - Arthralgia [Not Recovered/Not Resolved]

NARRATIVE: CASE EVENT DATE: 201604
